FAERS Safety Report 9268260 (Version 1)
Quarter: 2013Q2

REPORT INFORMATION
  Report Type: Spontaneous
  Country: ES (occurrence: ES)
  Receive Date: 20130502
  Receipt Date: 20130502
  Transmission Date: 20140414
  Serious: Yes (Other)
  Sender: FDA-Public Use
  Company Number: ES-ELI_LILLY_AND_COMPANY-ES201304007505

PATIENT
  Age: 82 Year
  Sex: Female

DRUGS (2)
  1. FORSTEO [Suspect]
     Indication: OSTEOPOROSIS
     Dosage: 20 UG, QD
     Route: 058
     Dates: start: 20130201, end: 20130403
  2. VENTOLIN                                /SCH/ [Concomitant]

REACTIONS (1)
  - Arrhythmia [Recovered/Resolved]
